FAERS Safety Report 10184019 (Version 1)
Quarter: 2014Q2

REPORT INFORMATION
  Report Type: Spontaneous
  Country: TR (occurrence: TR)
  Receive Date: 20140520
  Receipt Date: 20140520
  Transmission Date: 20141212
  Serious: Yes (Hospitalization, Other)
  Sender: FDA-Public Use
  Company Number: TR-WATSON-2014-10352

PATIENT
  Age: 77 Year
  Sex: Female

DRUGS (3)
  1. METHYLPREDNISOLONE (UNKNOWN) [Suspect]
     Indication: TEMPORAL ARTERITIS
     Dosage: 48 MG, DAILY
     Route: 065
  2. METHYLPREDNISOLONE (UNKNOWN) [Suspect]
     Dosage: 16 MG, DAILY
     Route: 065
  3. CEFTRIAXONE (UNKNOWN) [Suspect]
     Indication: URINARY TRACT INFECTION
     Dosage: UNKNOWN
     Route: 065

REACTIONS (2)
  - Cytomegalovirus oesophagitis [Recovered/Resolved]
  - Oesophageal candidiasis [Recovered/Resolved]
